FAERS Safety Report 8848829 (Version 2)
Quarter: 2013Q2

REPORT INFORMATION
  Report Type: Spontaneous
  Country: US (occurrence: None)
  Receive Date: 20121015
  Receipt Date: 20130509
  Transmission Date: 20140414
  Serious: Yes (Hospitalization, Other)
  Sender: FDA-Public Use
  Company Number: 2012033571

PATIENT
  Age: 50 Year
  Sex: Male

DRUGS (1)
  1. DESMOPRESSIN [Suspect]
     Indication: HYPOPITUITARISM
     Dosage: RESPIRATORY (INHALATION)
     Route: 055

REACTIONS (3)
  - Off label use [None]
  - Diabetes insipidus [None]
  - Prinzmetal angina [None]
